FAERS Safety Report 8026151-0 (Version None)
Quarter: 2012Q1

REPORT INFORMATION
  Report Type: 
  Country: None (occurrence: None)
  Receive Date: 20120105
  Receipt Date: 20110715
  Transmission Date: 20120608
  Serious: No
  Sender: FDA-Public Use
  Company Number: US-ABBOTT-11P-163-0839775-00

PATIENT
  Age: 40 Year
  Sex: Female
  Weight: 52.21 kg

DRUGS (1)
  1. SYNTHROID [Suspect]
     Indication: HYPOTHYROIDISM
     Dates: start: 20080101

REACTIONS (2)
  - TABLET PHYSICAL ISSUE [None]
  - ABDOMINAL PAIN UPPER [None]
